FAERS Safety Report 20186226 (Version 1)
Quarter: 2021Q4

REPORT INFORMATION
  Report Type: Spontaneous
  Country: US (occurrence: US)
  Receive Date: 20211215
  Receipt Date: 20211215
  Transmission Date: 20220304
  Serious: No
  Sender: FDA-Public Use
  Company Number: US-STRIDES ARCOLAB LIMITED-2021SP029833

PATIENT
  Age: 55 Year
  Sex: Female

DRUGS (3)
  1. TRIAMCINOLONE ACETONIDE [Suspect]
     Active Substance: TRIAMCINOLONE ACETONIDE
     Indication: Dermatitis contact
     Dosage: UNK, TWICE WEEKLY, 0.1 PERCENT OINTMENT
     Route: 061
  2. CLOTRIMAZOLE [Suspect]
     Active Substance: CLOTRIMAZOLE
     Indication: Dermatitis contact
     Dosage: UNK
     Route: 065
  3. DROMETRIZOLE TRISILOXANE [Concomitant]
     Indication: Stress urinary incontinence
     Dosage: UNK
     Route: 065

REACTIONS (1)
  - Drug ineffective [Unknown]
